FAERS Safety Report 7635598-3 (Version None)
Quarter: 2011Q3

REPORT INFORMATION
  Report Type: 
  Country: None (occurrence: None)
  Receive Date: 20110726
  Receipt Date: 20110713
  Transmission Date: 20111222
  Serious: Yes (Hospitalization)
  Sender: FDA-Public Use
  Company Number: PHHY2011BR62535

PATIENT
  Sex: Male
  Weight: 39 kg

DRUGS (3)
  1. MULTI-VITAMINS [Concomitant]
     Dosage: 20 MG, DAILY
  2. EXELON [Suspect]
     Indication: DEMENTIA ALZHEIMER'S TYPE
     Dosage: 1 DF, DAILY
     Route: 062
  3. NEULEPTIL [Suspect]
     Indication: INSOMNIA
     Dosage: UNK UKN, UNK

REACTIONS (6)
  - ASPIRATION [None]
  - HICCUPS [None]
  - URINARY TRACT INFECTION [None]
  - SNORING [None]
  - SOMNOLENCE [None]
  - PNEUMONIA [None]
